FAERS Safety Report 18565340 (Version 2)
Quarter: 2021Q1

REPORT INFORMATION
  Report Type: Spontaneous
  Country: JP (occurrence: JP)
  Receive Date: 20201201
  Receipt Date: 20210105
  Transmission Date: 20210419
  Serious: No
  Sender: FDA-Public Use
  Company Number: JP-ELI_LILLY_AND_COMPANY-JP202011013093

PATIENT
  Age: 85 Year
  Sex: Female

DRUGS (27)
  1. AZULFIDINE EN?TABS [Suspect]
     Active Substance: SULFASALAZINE
     Dosage: 1000 MG, BID
     Route: 048
     Dates: start: 20200919
  2. PREDONINE [Suspect]
     Active Substance: PREDNISOLONE
     Dosage: 7.5 MG, EACH MORNING
     Route: 048
     Dates: start: 20201003
  3. PREDONINE [Suspect]
     Active Substance: PREDNISOLONE
     Dosage: 5 MG
     Route: 048
     Dates: start: 20200808
  4. PREDONINE [Suspect]
     Active Substance: PREDNISOLONE
     Dosage: 5 MG, DAILY
     Route: 048
     Dates: start: 20200905, end: 20200918
  5. PREDONINE [Suspect]
     Active Substance: PREDNISOLONE
     Dosage: 5 MG, EACH MORNING
     Route: 048
     Dates: start: 20201030
  6. VOLTAREN [Concomitant]
     Active Substance: DICLOFENAC SODIUM
     Dosage: 50 MG, PRN
     Route: 062
  7. TARLIGE [Suspect]
     Active Substance: MIROGABALIN BESYLATE
     Indication: PRODUCT USED FOR UNKNOWN INDICATION
     Dosage: 5 MG, BID
     Route: 048
     Dates: start: 20200808, end: 20200821
  8. DENOTAS [Suspect]
     Active Substance: CALCIUM CARBONATE\CHOLECALCIFEROL\MAGNESIUM CARBONATE
     Indication: PRODUCT USED FOR UNKNOWN INDICATION
     Dosage: 2 DOSAGE FORM, DAILY
     Route: 048
     Dates: start: 20200708
  9. PREDONINE [Suspect]
     Active Substance: PREDNISOLONE
     Indication: PRODUCT USED FOR UNKNOWN INDICATION
     Dosage: 10 MG, EACH MORNING
     Route: 048
     Dates: start: 20200609
  10. XYLOCAINE [Concomitant]
     Active Substance: LIDOCAINE HYDROCHLORIDE
  11. AZULFIDINE EN?TABS [Suspect]
     Active Substance: SULFASALAZINE
     Indication: PRODUCT USED FOR UNKNOWN INDICATION
     Dosage: 500 MG, BID
     Route: 048
     Dates: start: 20200905, end: 20200918
  12. PREDONINE [Suspect]
     Active Substance: PREDNISOLONE
     Dosage: 20 MG, EACH MORNING
     Route: 048
     Dates: start: 20200620
  13. PREDONINE [Suspect]
     Active Substance: PREDNISOLONE
     Dosage: 5 MG, DAILY
     Route: 048
     Dates: start: 20200725, end: 20200807
  14. PREDONINE [Suspect]
     Active Substance: PREDNISOLONE
     Dosage: 10 MG, EACH MORNING
     Route: 048
     Dates: start: 20201016, end: 20201029
  15. PREDONINE [Suspect]
     Active Substance: PREDNISOLONE
     Dosage: 5 MG, EACH EVENING
     Route: 048
     Dates: start: 20200708
  16. PREDONINE [Suspect]
     Active Substance: PREDNISOLONE
     Dosage: 2.5 MG, EACH EVENING
     Route: 048
     Dates: start: 20200711, end: 20200717
  17. KENACORT [Concomitant]
     Active Substance: TRIAMCINOLONE
  18. DULOXETINE HYDROCHLORIDE. [Suspect]
     Active Substance: DULOXETINE HYDROCHLORIDE
     Indication: PAIN
     Dosage: 20 MG, DAILY
     Route: 048
     Dates: start: 20200720, end: 20200724
  19. DULOXETINE HYDROCHLORIDE. [Suspect]
     Active Substance: DULOXETINE HYDROCHLORIDE
     Dosage: 40 MG, DAILY
     Route: 048
     Dates: start: 20200725, end: 20200731
  20. PREDONINE [Suspect]
     Active Substance: PREDNISOLONE
     Dosage: 15 MG, EACH MORNING
     Route: 048
     Dates: start: 20200613
  21. PREDONINE [Suspect]
     Active Substance: PREDNISOLONE
     Dosage: 10 MG, EACH MORNING
     Route: 048
     Dates: start: 20200708, end: 20200717
  22. PREDONINE [Suspect]
     Active Substance: PREDNISOLONE
     Dosage: 10 MG, EACH MORNING
     Route: 048
     Dates: start: 20200919, end: 20201002
  23. NORSPAN [Concomitant]
     Active Substance: BUPRENORPHINE
     Route: 062
  24. DULOXETINE HYDROCHLORIDE. [Suspect]
     Active Substance: DULOXETINE HYDROCHLORIDE
     Dosage: 60 MG, DAILY
     Route: 048
     Dates: start: 20200801, end: 20201030
  25. TARLIGE [Suspect]
     Active Substance: MIROGABALIN BESYLATE
     Dosage: 10 MG, BID
     Route: 048
     Dates: start: 20200822
  26. PREDONINE [Suspect]
     Active Substance: PREDNISOLONE
     Dosage: 7.5 MG, DAILY
     Route: 048
     Dates: start: 20200718, end: 20200724
  27. PREDONINE [Suspect]
     Active Substance: PREDNISOLONE
     Dosage: 2.5 MG
     Route: 048
     Dates: start: 20200822

REACTIONS (4)
  - Liver disorder [Recovered/Resolved]
  - Intentional product misuse [Unknown]
  - Hepatic enzyme increased [Recovered/Resolved]
  - Hepatic steatosis [Recovered/Resolved]

NARRATIVE: CASE EVENT DATE: 20201019
